FAERS Safety Report 11753595 (Version 1)
Quarter: 2015Q4

REPORT INFORMATION
  Report Type: Spontaneous
  Country: US (occurrence: None)
  Receive Date: 20151118
  Receipt Date: 20151118
  Transmission Date: 20160304
  Serious: Yes (Other)
  Sender: FDA-Public Use
  Company Number: None

PATIENT
  Age: 66 Year
  Sex: Female

DRUGS (5)
  1. BETAMETHASONE DIPROPRIONATE 0.05% [Concomitant]
  2. LOSARTAN. [Concomitant]
     Active Substance: LOSARTAN
  3. OXYCODONE/APAP [Concomitant]
     Active Substance: ACETAMINOPHEN\OXYCODONE HYDROCHLORIDE
  4. ANASTROZOLE. [Concomitant]
     Active Substance: ANASTROZOLE
  5. OTEZLA [Suspect]
     Active Substance: APREMILAST
     Indication: PSORIATIC ARTHROPATHY
     Route: 048
     Dates: start: 20151028, end: 20151117

REACTIONS (4)
  - Diarrhoea [None]
  - Headache [None]
  - Photosensitivity reaction [None]
  - Nausea [None]

NARRATIVE: CASE EVENT DATE: 20151101
